FAERS Safety Report 5265547-7 (Version None)
Quarter: 2007Q1

REPORT INFORMATION
  Report Type: 
  Country: None (occurrence: None)
  Receive Date: 20070314
  Receipt Date: 20070302
  Transmission Date: 20070707
  Serious: Yes (Other)
  Sender: FDA-Public Use
  Company Number: US-PFIZER INC-2007017397

PATIENT
  Sex: Female
  Weight: 96.6 kg

DRUGS (14)
  1. CHANTIX [Suspect]
     Indication: SMOKING CESSATION THERAPY
  2. PLAVIX [Concomitant]
  3. ACTOS [Concomitant]
  4. TRICOR [Concomitant]
  5. ZOCOR [Concomitant]
  6. METFORMIN HCL [Concomitant]
  7. AMITRIPTYLINE HCL [Concomitant]
  8. IBUPROFEN [Concomitant]
  9. ALEVE [Concomitant]
  10. VITAMINS [Concomitant]
  11. CALCIUM [Concomitant]
  12. CENTRUM SILVER [Concomitant]
  13. VITAMIN B COMPLEX CAP [Concomitant]
  14. ACETYLSALICYLIC ACID SRT [Concomitant]

REACTIONS (7)
  - ASTHENIA [None]
  - DECREASED ACTIVITY [None]
  - DIZZINESS [None]
  - FATIGUE [None]
  - INSOMNIA [None]
  - SOMNOLENCE [None]
  - WEIGHT DECREASED [None]
